FAERS Safety Report 8893316 (Version 1)
Quarter: 2012Q4

REPORT INFORMATION
  Report Type: 
  Country: US (occurrence: US)
  Receive Date: 20121107
  Receipt Date: 20121107
  Transmission Date: 20130627
  Serious: No
  Sender: FDA-Public Use
  Company Number: US-AMGEN-USASP2011050981

PATIENT
  Sex: Female

DRUGS (8)
  1. ENBREL [Suspect]
     Indication: PRODUCT USED FOR UNKNOWN INDICATION
     Dosage: 50 mg, qwk
     Route: 058
  2. GABAPENTIN [Concomitant]
     Dosage: 100 mg, UNK
  3. OXYCODONE [Concomitant]
     Dosage: 10 mg, UNK
  4. METHOTREXATE [Concomitant]
  5. ZANAFLEX [Concomitant]
     Dosage: 4 mg, UNK
  6. VITAMIN D /00107901/ [Concomitant]
     Dosage: 1000 IU, UNK
  7. CALCIUM WITH VITAMIN D             /00944201/ [Concomitant]
  8. FOLIC ACID [Concomitant]
     Dosage: 20 mg, UNK

REACTIONS (1)
  - Injection site pain [Unknown]
